FAERS Safety Report 10607421 (Version 1)
Quarter: 2014Q4

REPORT INFORMATION
  Report Type: Spontaneous
  Country: US (occurrence: None)
  Receive Date: 20141124
  Receipt Date: 20141124
  Transmission Date: 20150529
  Serious: Yes (Hospitalization)
  Sender: FDA-Public Use
  Company Number: None

PATIENT
  Age: 41 Year
  Sex: Female
  Weight: 134 kg

DRUGS (12)
  1. WELLBUTRIN [Suspect]
     Active Substance: BUPROPION HYDROCHLORIDE
  2. BACLOFEN. [Concomitant]
     Active Substance: BACLOFEN
  3. PROZAC [Suspect]
     Active Substance: FLUOXETINE HYDROCHLORIDE
  4. TRAZODONE [Concomitant]
     Active Substance: TRAZODONE HYDROCHLORIDE
  5. DIAZEPAM. [Suspect]
     Active Substance: DIAZEPAM
     Indication: ANXIETY
     Dosage: CHRONIC  10MG  BID  PO
     Route: 048
  6. ABILIFY [Suspect]
     Active Substance: ARIPIPRAZOLE
     Dosage: CHRONIC
  7. PROVENTIL [Concomitant]
     Active Substance: ALBUTEROL
  8. FINGOLIMOD [Suspect]
     Active Substance: FINGOLIMOD
  9. NEURONTIN [Concomitant]
     Active Substance: GABAPENTIN
  10. TOPAMAX [Concomitant]
     Active Substance: TOPIRAMATE
  11. DEPAKOTE [Suspect]
     Active Substance: DIVALPROEX SODIUM
  12. GILENYA [Concomitant]
     Active Substance: FINGOLIMOD HYDROCHLORIDE

REACTIONS (7)
  - Confusional state [None]
  - Asthenia [None]
  - Multiple sclerosis [None]
  - Somnolence [None]
  - Central nervous system lesion [None]
  - Encephalopathy [None]
  - Mental status changes [None]

NARRATIVE: CASE EVENT DATE: 20140506
